FAERS Safety Report 9728524 (Version 2)
Quarter: 2013Q4

REPORT INFORMATION
  Report Type: Report from Study
  Country: CL (occurrence: CL)
  Receive Date: 20131204
  Receipt Date: 20131204
  Transmission Date: 20140711
  Serious: Yes (Other)
  Sender: FDA-Public Use
  Company Number: PHHY2013CL139085

PATIENT
  Age: 33 Year
  Sex: Male

DRUGS (1)
  1. LEPONEX [Suspect]
     Dosage: 300 MG
     Route: 048
     Dates: start: 200908

REACTIONS (2)
  - Limb injury [Unknown]
  - Haemorrhage [Unknown]
